FAERS Safety Report 8370210-X (Version None)
Quarter: 2012Q2

REPORT INFORMATION
  Report Type: 
  Country: None (occurrence: None)
  Receive Date: 20120518
  Receipt Date: 20120508
  Transmission Date: 20120825
  Serious: Yes (Hospitalization, Other)
  Sender: FDA-Public Use
  Company Number: DE-ELI_LILLY_AND_COMPANY-DE201204000575

PATIENT
  Age: 62 Year
  Sex: Male

DRUGS (4)
  1. ALIMTA [Suspect]
     Indication: URETHRAL CANCER METASTATIC
     Dosage: 500 MG/M2, UNKNOWN
     Route: 042
  2. VITAMIN B-12 [Concomitant]
     Dosage: UNK, UNKNOWN
  3. FOLIC ACID [Concomitant]
     Dosage: UNK, UNKNOWN
  4. DEXAMETHASONE SODIUM PHOSPHATE [Concomitant]
     Dosage: UNK, UNKNOWN

REACTIONS (5)
  - OFF LABEL USE [None]
  - UROSEPSIS [None]
  - ERYTHEMA [None]
  - LEUKOPENIA [None]
  - HAEMATEMESIS [None]
